FAERS Safety Report 4431073-8 (Version None)
Quarter: 2004Q3

REPORT INFORMATION
  Report Type: 
  Country: None (occurrence: None)
  Receive Date: 20040824
  Receipt Date: 20040813
  Transmission Date: 20050211
  Serious: Yes (Hospitalization)
  Sender: FDA-Public Use
  Company Number: PHNU2004DE02857

PATIENT
  Sex: Female

DRUGS (2)
  1. VOLTAREN [Suspect]
     Indication: MYALGIA
     Route: 030
  2. HORMONES [Suspect]
     Route: 030

REACTIONS (3)
  - COMA [None]
  - NECROTISING FASCIITIS STREPTOCOCCAL [None]
  - STREPTOCOCCAL SEPSIS [None]
